FAERS Safety Report 5589986-X (Version None)
Quarter: 2008Q1

REPORT INFORMATION
  Report Type: 
  Country: None (occurrence: None)
  Receive Date: 20080114
  Receipt Date: 20080109
  Transmission Date: 20080703
  Serious: Yes (Other)
  Sender: FDA-Public Use
  Company Number: DE-JNJFOC-20071004535

PATIENT
  Sex: Female

DRUGS (2)
  1. INFLIXIMAB [Suspect]
     Indication: CROHN'S DISEASE
     Route: 042
  2. AZATHIOPRINE [Concomitant]

REACTIONS (3)
  - B-CELL LYMPHOMA [None]
  - DRUG EXPOSURE DURING PREGNANCY [None]
  - EPSTEIN-BARR VIRUS INFECTION [None]
